FAERS Safety Report 7106490-8 (Version None)
Quarter: 2010Q4

REPORT INFORMATION
  Report Type: 
  Country: None (occurrence: None)
  Receive Date: 20101116
  Receipt Date: 20101104
  Transmission Date: 20110411
  Serious: Yes (Other)
  Sender: FDA-Public Use
  Company Number: FI-GENENTECH-309459

PATIENT
  Age: 65 Year
  Sex: Male

DRUGS (8)
  1. MABTHERA [Suspect]
     Indication: CHRONIC LYMPHOCYTIC LEUKAEMIA
     Dosage: UNK
     Route: 065
     Dates: start: 20061001, end: 20070101
  2. MABTHERA [Suspect]
     Dosage: UNK
     Route: 065
     Dates: start: 20091101, end: 20100201
  3. CORTISONE [Suspect]
     Indication: PRODUCT USED FOR UNKNOWN INDICATION
     Dosage: UNK
     Route: 065
  4. CORTISONE [Suspect]
     Dosage: UNK
     Route: 065
  5. METHOTREXATE [Concomitant]
     Indication: CHRONIC LYMPHOCYTIC LEUKAEMIA
     Dosage: TOTALLY 9 CYCLES
     Route: 037
  6. FLUDARABINE PHOSPHATE [Concomitant]
     Indication: CHRONIC LYMPHOCYTIC LEUKAEMIA
     Dosage: UNK
     Dates: start: 20061001, end: 20070101
  7. FLUDARABINE PHOSPHATE [Concomitant]
     Dosage: UNK
     Dates: start: 20091101, end: 20100201
  8. CYCLOPHOSPHAMIDE [Concomitant]
     Indication: CHRONIC LYMPHOCYTIC LEUKAEMIA
     Dosage: UNK
     Dates: start: 20061001, end: 20070101

REACTIONS (10)
  - ANAEMIA HAEMOLYTIC AUTOIMMUNE [None]
  - DIARRHOEA [None]
  - DISEASE PROGRESSION [None]
  - FEBRILE INFECTION [None]
  - MUSCLE ATROPHY [None]
  - NEUTROPENIA [None]
  - PANCYTOPENIA [None]
  - SPLENOMEGALY [None]
  - THROMBOCYTOPENIA [None]
  - WHITE BLOOD CELL COUNT INCREASED [None]
